FAERS Safety Report 16781520 (Version 1)
Quarter: 2019Q3

REPORT INFORMATION
  Report Type: Report from Study
  Country: ZA (occurrence: ZA)
  Receive Date: 20190906
  Receipt Date: 20190906
  Transmission Date: 20191005
  Serious: Yes (Hospitalization)
  Sender: FDA-Public Use
  Company Number: ZA-JNJFOC-20190838789

PATIENT
  Age: 27 Year
  Sex: Male
  Weight: 75.2 kg

DRUGS (1)
  1. ESKETAMINE [Suspect]
     Active Substance: ESKETAMINE
     Indication: DEPRESSION
     Dosage: MOST RECENT 26-AUG-2019; MED KIT NUMBER 28736-1, -2,-3
     Dates: start: 20170424

REACTIONS (1)
  - Nasal polyps [Recovered/Resolved]

NARRATIVE: CASE EVENT DATE: 20190827
